FAERS Safety Report 5716751-2 (Version None)
Quarter: 2008Q2

REPORT INFORMATION
  Report Type: 
  Country: None (occurrence: None)
  Receive Date: 20080424
  Receipt Date: 20070730
  Transmission Date: 20081010
  Serious: No
  Sender: FDA-Public Use
  Company Number: US-BAYER-200711647BWH

PATIENT
  Sex: Female

DRUGS (4)
  1. LEVITRA [Suspect]
     Indication: DRUG USE FOR UNKNOWN INDICATION
     Dosage: TOTAL DAILY DOSE: 20 MG  UNIT DOSE: 20 MG
     Route: 048
     Dates: start: 20070501
  2. LEVITRA [Suspect]
     Dosage: TOTAL DAILY DOSE: 20 MG  UNIT DOSE: 20 MG
     Route: 048
     Dates: start: 20070501
  3. LEVITRA [Suspect]
     Dosage: TOTAL DAILY DOSE: 20 MG  UNIT DOSE: 20 MG
     Route: 048
     Dates: start: 20070501
  4. DOXYCYCLINE [Concomitant]

REACTIONS (2)
  - UNEVALUABLE EVENT [None]
  - WRONG DRUG ADMINISTERED [None]
